FAERS Safety Report 9868446 (Version 2)
Quarter: 2014Q2

REPORT INFORMATION
  Report Type: Report from Study
  Country: US (occurrence: US)
  Receive Date: 20140204
  Receipt Date: 20140501
  Transmission Date: 20141212
  Serious: Yes (Hospitalization)
  Sender: FDA-Public Use
  Company Number: US-ACTELION-A-NJ2014-94318

PATIENT
  Age: 36 Year
  Sex: Female

DRUGS (5)
  1. TRACLEER [Suspect]
     Indication: COR PULMONALE CHRONIC
     Dosage: UNK
     Route: 048
  2. ADCIRCA [Concomitant]
  3. RIOCIGUAT [Concomitant]
  4. REMODULIN [Concomitant]
  5. WARFARIN [Concomitant]

REACTIONS (3)
  - Uterine haemorrhage [Unknown]
  - Transfusion [Unknown]
  - Female sterilisation [Unknown]
